FAERS Safety Report 9230806 (Version 1)
Quarter: 2013Q2

REPORT INFORMATION
  Report Type: Spontaneous
  Country: SE (occurrence: SE)
  Receive Date: 20130415
  Receipt Date: 20130415
  Transmission Date: 20140414
  Serious: Yes (Other)
  Sender: FDA-Public Use
  Company Number: SE-ASTRAZENECA-2013SE22474

PATIENT
  Age: 11 Year
  Sex: Female

DRUGS (7)
  1. PROPOFOL [Suspect]
     Route: 042
     Dates: start: 20121003, end: 20121003
  2. INOVELON [Suspect]
     Route: 065
     Dates: start: 20121003, end: 20121003
  3. SEVOFLURAN BAXTER [Suspect]
     Route: 055
     Dates: start: 20121003, end: 20121003
  4. REMIFENTANIL [Suspect]
     Route: 065
     Dates: start: 20121003, end: 20121003
  5. LAMICTAL [Concomitant]
  6. LEHYDAN [Concomitant]
  7. UNSPECIFIED [Concomitant]

REACTIONS (2)
  - Drug level increased [Unknown]
  - Convulsion [Unknown]
